FAERS Safety Report 8800284 (Version 2)
Quarter: 2015Q2

REPORT INFORMATION
  Report Type: Report from Study
  Country: US (occurrence: US)
  Receive Date: 20120921
  Receipt Date: 20150623
  Transmission Date: 20150821
  Serious: Yes (Death, Hospitalization)
  Sender: FDA-Public Use
  Company Number: US-ROCHE-1099720

PATIENT
  Sex: Male
  Weight: 77.18 kg

DRUGS (19)
  1. GEMZAR [Concomitant]
     Active Substance: GEMCITABINE HYDROCHLORIDE
     Dosage: IN 250 CC NORMAL SALINE IV OVER/HOURS DAY: 1,8,15?1000 MG/M2
     Route: 042
     Dates: end: 200405
  2. PANCREASE (UNITED STATES) [Concomitant]
     Dosage: 3-4 PILLS BEFORE MEALS
     Route: 065
  3. LEVAQUIN [Concomitant]
     Active Substance: LEVOFLOXACIN
  4. ALOXI [Concomitant]
     Active Substance: PALONOSETRON HYDROCHLORIDE
     Route: 065
  5. BENADRYL [Concomitant]
     Active Substance: DIPHENHYDRAMINE HYDROCHLORIDE
     Route: 065
  6. DURAGESIC [Concomitant]
     Active Substance: FENTANYL
  7. MAGNESIUM SULFATE. [Concomitant]
     Active Substance: MAGNESIUM SULFATE
  8. TARCEVA [Concomitant]
     Active Substance: ERLOTINIB HYDROCHLORIDE
     Route: 048
  9. DECADRON [Concomitant]
     Active Substance: DEXAMETHASONE
     Route: 065
  10. CALCIUM GLUCONATE. [Concomitant]
     Active Substance: CALCIUM GLUCONATE
  11. DECADRON [Concomitant]
     Active Substance: DEXAMETHASONE
     Route: 042
  12. REGLAN [Concomitant]
     Active Substance: METOCLOPRAMIDE HYDROCHLORIDE
     Dosage: AS NEEDED
     Route: 048
  13. AVASTIN [Suspect]
     Active Substance: BEVACIZUMAB
     Indication: PANCREATIC CARCINOMA
     Dosage: 10 MG/KG IN 250 CC NORMAL SALINE
     Route: 042
     Dates: start: 20050820, end: 20050909
  14. NOVOLOG [Concomitant]
     Active Substance: INSULIN ASPART
     Dosage: 2 UNITS WITH MEALS AND AS PER THE SLIDING SCALE INSULIN
     Route: 058
  15. FENTANYL. [Concomitant]
     Active Substance: FENTANYL
     Route: 065
  16. LANTUS [Concomitant]
     Active Substance: INSULIN GLARGINE
     Route: 065
  17. MARINOL (UNITED STATES) [Concomitant]
     Route: 065
  18. LASIX [Concomitant]
     Active Substance: FUROSEMIDE
     Route: 065
  19. ALBUMIN [Concomitant]
     Active Substance: ALBUMIN (HUMAN)
     Route: 042

REACTIONS (13)
  - Cough [Unknown]
  - Abdominal discomfort [Unknown]
  - Jaundice [Unknown]
  - Pallor [Unknown]
  - Nausea [Unknown]
  - Dehydration [Unknown]
  - Decreased appetite [Unknown]
  - Somnolence [Unknown]
  - Back pain [Unknown]
  - Death [Fatal]
  - Asthenia [Unknown]
  - Oedema peripheral [Unknown]
  - Off label use [Unknown]
